FAERS Safety Report 7325295-6 (Version None)
Quarter: 2011Q1

REPORT INFORMATION
  Report Type: 
  Country: None (occurrence: None)
  Receive Date: 20110302
  Receipt Date: 20100712
  Transmission Date: 20110831
  Serious: Yes (Other)
  Sender: FDA-Public Use
  Company Number: US-BAYER-200938752NA

PATIENT
  Sex: Female
  Weight: 140.59 kg

DRUGS (8)
  1. DIAMOX [Concomitant]
     Route: 048
  2. YASMIN [Suspect]
     Indication: CONTRACEPTION
     Dosage: 1 DF, QD
     Route: 048
     Dates: start: 20071001, end: 20080101
  3. YAZ [Suspect]
  4. YASMIN [Suspect]
     Indication: PREMENSTRUAL SYNDROME
  5. YAZ [Suspect]
     Indication: PREMENSTRUAL SYNDROME
     Dosage: 1 DF, QD
     Route: 048
     Dates: start: 20071001, end: 20080101
  6. TOPAMAX [Concomitant]
     Route: 048
  7. YASMIN [Suspect]
  8. PLAVIX [Concomitant]
     Dosage: 7 MG, UNK
     Route: 048

REACTIONS (7)
  - PAIN [None]
  - BLINDNESS TRANSIENT [None]
  - VOMITING [None]
  - CEREBRAL THROMBOSIS [None]
  - OPTIC NERVE SHEATH HAEMORRHAGE [None]
  - HEADACHE [None]
  - DIZZINESS [None]
